FAERS Safety Report 16166854 (Version 2)
Quarter: 2019Q3

REPORT INFORMATION
  Report Type: Spontaneous
  Country: US (occurrence: US)
  Receive Date: 20190408
  Receipt Date: 20190823
  Transmission Date: 20191004
  Serious: Yes (Other)
  Sender: FDA-Public Use
  Company Number: US-BEH-2019101184

PATIENT
  Age: 53 Year
  Sex: Female

DRUGS (36)
  1. PHENTERMINE HCL [Concomitant]
     Active Substance: PHENTERMINE HYDROCHLORIDE
  2. STREPTOMYCIN SULFATE. [Concomitant]
     Active Substance: STREPTOMYCIN SULFATE
  3. VANCOMYCIN HCL SHIONOGI [Concomitant]
  4. VYVANSE [Concomitant]
     Active Substance: LISDEXAMFETAMINE DIMESYLATE
  5. CLARINEX [Concomitant]
     Active Substance: DESLORATADINE
     Dosage: UNK
     Route: 065
  6. BREXPIPRAZOLE [Concomitant]
     Active Substance: BREXPIPRAZOLE
  7. BETAMETHASONE. [Concomitant]
     Active Substance: BETAMETHASONE
  8. CLOTRIMAZOLE AND BETAMETHASONE [Concomitant]
     Active Substance: BETAMETHASONE\CLOTRIMAZOLE
  9. PREDNISONE. [Concomitant]
     Active Substance: PREDNISONE
  10. SYMBICORT [Concomitant]
     Active Substance: BUDESONIDE\FORMOTEROL FUMARATE DIHYDRATE
  11. HIZENTRA [Suspect]
     Active Substance: HUMAN IMMUNOGLOBULIN G
     Indication: IMMUNODEFICIENCY COMMON VARIABLE
     Dosage: 10 G, UNK
     Route: 058
     Dates: start: 201802
  12. HIZENTRA [Suspect]
     Active Substance: HUMAN IMMUNOGLOBULIN G
     Dosage: 18 GRAM, QW
     Route: 058
  13. COLLAGENASE [Concomitant]
     Active Substance: COLLAGENASE CLOSTRIDIUM HISTOLYTICUM
  14. ITRACONAZOLE. [Concomitant]
     Active Substance: ITRACONAZOLE
  15. TOBRAMYCIN. [Concomitant]
     Active Substance: TOBRAMYCIN
  16. NARATRIPTAN [Concomitant]
     Active Substance: NARATRIPTAN HYDROCHLORIDE
  17. AZITHROMYCIN ANHYDROUS. [Concomitant]
     Active Substance: AZITHROMYCIN ANHYDROUS
  18. ACETAMINOPHEN. [Concomitant]
     Active Substance: ACETAMINOPHEN
  19. DICLOFENAC SODIUM. [Concomitant]
     Active Substance: DICLOFENAC SODIUM
     Dosage: UNK
     Route: 065
  20. REXULTI [Concomitant]
     Active Substance: BREXPIPRAZOLE
     Dosage: UNK
     Route: 065
  21. PLAQUENIL S [Concomitant]
     Active Substance: HYDROXYCHLOROQUINE SULFATE
     Indication: RHEUMATOID ARTHRITIS
     Dosage: UNK
     Route: 065
  22. MACROBID [Concomitant]
     Active Substance: NITROFURANTOIN\NITROFURANTOIN MONOHYDRATE
  23. CIPROFLOXACIN. [Concomitant]
     Active Substance: CIPROFLOXACIN
  24. QUETIAPINE FUMARATE. [Concomitant]
     Active Substance: QUETIAPINE FUMARATE
  25. SULFAMETHOXAZOLE W/TRIMETHOPRIM [Concomitant]
     Active Substance: SULFAMETHOXAZOLE\TRIMETHOPRIM
  26. TERBINAFINE HCL [Concomitant]
     Active Substance: TERBINAFINE HYDROCHLORIDE
  27. MYCIN [BENZATHINE BENZYLPENICILLIN] [Concomitant]
     Active Substance: PENICILLIN G BENZATHINE
     Dosage: UNK
     Route: 065
  28. HIZENTRA [Suspect]
     Active Substance: HUMAN IMMUNOGLOBULIN G
     Dosage: 10 G,
     Route: 058
     Dates: start: 201802
  29. SULFASALAZINE. [Concomitant]
     Active Substance: SULFASALAZINE
  30. CLINDAMYCIN HCL [Concomitant]
     Active Substance: CLINDAMYCIN HYDROCHLORIDE
  31. BUSPIRONE HCL [Concomitant]
     Active Substance: BUSPIRONE HYDROCHLORIDE
  32. POLYETHYLENE GLYCOL [Concomitant]
     Active Substance: POLYETHYLENE GLYCOLS
  33. DOXYCYCLINE. [Concomitant]
     Active Substance: DOXYCYCLINE
  34. BACTRIM [Concomitant]
     Active Substance: SULFAMETHOXAZOLE\TRIMETHOPRIM
  35. BUDESONIDE. [Concomitant]
     Active Substance: BUDESONIDE
  36. CEFDINIR. [Concomitant]
     Active Substance: CEFDINIR

REACTIONS (18)
  - Fatigue [Recovered/Resolved]
  - Fall [Recovered/Resolved]
  - Seasonal allergy [Recovered/Resolved]
  - Joint surgery [Recovered/Resolved]
  - Limb injury [Recovered/Resolved]
  - Insomnia [Recovered/Resolved]
  - Pain [Recovered/Resolved]
  - Headache [Recovered/Resolved]
  - Rheumatoid arthritis [Recovered/Resolved]
  - Foot fracture [Recovered/Resolved]
  - Migraine [Recovered/Resolved]
  - Red blood cell sedimentation rate increased [Recovered/Resolved]
  - Arthritis [Recovered/Resolved]
  - Urinary tract infection [Recovered/Resolved]
  - Depression [Unknown]
  - Infusion related reaction [Recovered/Resolved]
  - Weight bearing difficulty [Recovered/Resolved]
  - Arthralgia [Recovered/Resolved]

NARRATIVE: CASE EVENT DATE: 201901
